FAERS Safety Report 19492723 (Version 1)
Quarter: 2021Q3

REPORT INFORMATION
  Report Type: Spontaneous
  Country: US (occurrence: US)
  Receive Date: 20210705
  Receipt Date: 20210705
  Transmission Date: 20211014
  Serious: No
  Sender: FDA-Public Use
  Company Number: US-AIZANT-2021AIZANTLIT00036

PATIENT
  Age: 72 Year
  Sex: Female

DRUGS (6)
  1. CALCIUM GLUCONATE. [Suspect]
     Active Substance: CALCIUM GLUCONATE
     Indication: HYPERKALAEMIA
     Route: 065
  2. POTASSIUM CHLORIDE. [Concomitant]
     Active Substance: POTASSIUM CHLORIDE
     Indication: HYPOKALAEMIA
     Route: 048
  3. ALBUTEROL. [Suspect]
     Active Substance: ALBUTEROL
     Indication: HYPERKALAEMIA
     Route: 065
  4. INSULIN (REGULAR INSULIN) [Suspect]
     Active Substance: INSULIN NOS
     Indication: HYPERKALAEMIA
     Route: 065
  5. CALCIUM POLYSTYRENE SULFONATE (CALCIUM POLYSTYRENE) [Suspect]
     Active Substance: CALCIUM POLYSTYRENE SULFONATE
     Indication: HYPERKALAEMIA
     Route: 065
  6. FUROSEMIDE. [Suspect]
     Active Substance: FUROSEMIDE
     Indication: HYPERKALAEMIA
     Route: 065

REACTIONS (1)
  - Drug ineffective [Unknown]
